FAERS Safety Report 7964148-7 (Version None)
Quarter: 2011Q4

REPORT INFORMATION
  Report Type: 
  Country: None (occurrence: None)
  Receive Date: 20111205
  Receipt Date: 20111117
  Transmission Date: 20120403
  Serious: Yes (Other)
  Sender: FDA-Public Use
  Company Number: 2011AP002742

PATIENT
  Age: 47 Year
  Sex: Female

DRUGS (1)
  1. AMLODIPINE [Suspect]
     Indication: HYPERTENSION
     Dosage: 10 MG
     Route: 048
     Dates: start: 20101213, end: 20111031

REACTIONS (4)
  - DISCOMFORT [None]
  - GINGIVAL SWELLING [None]
  - GINGIVAL PAIN [None]
  - GINGIVITIS [None]
